FAERS Safety Report 11021394 (Version 2)
Quarter: 2015Q3

REPORT INFORMATION
  Report Type: Spontaneous
  Country: US (occurrence: US)
  Receive Date: 20150413
  Receipt Date: 20150707
  Transmission Date: 20151125
  Serious: Yes (Other)
  Sender: FDA-Public Use
  Company Number: US-ASTRAZENECA-2015SE32566

PATIENT
  Age: 12924 Day
  Sex: Female
  Weight: 69.9 kg

DRUGS (5)
  1. CRESTOR [Suspect]
     Active Substance: ROSUVASTATIN CALCIUM
     Indication: BLOOD TRIGLYCERIDES INCREASED
     Route: 048
     Dates: start: 20140926, end: 20141026
  2. VICTOZA [Concomitant]
     Active Substance: LIRAGLUTIDE
     Indication: DIABETES MELLITUS
     Route: 058
     Dates: start: 20140106
  3. LISINOPRIL. [Suspect]
     Active Substance: LISINOPRIL
     Indication: DIABETES MELLITUS
     Route: 048
     Dates: start: 20140220
  4. CRESTOR [Suspect]
     Active Substance: ROSUVASTATIN CALCIUM
     Indication: BLOOD TRIGLYCERIDES INCREASED
     Route: 048
  5. METFORMIN [Concomitant]
     Active Substance: METFORMIN HYDROCHLORIDE
     Indication: DIABETES MELLITUS
     Route: 048
     Dates: start: 20140112

REACTIONS (2)
  - Fungal infection [Unknown]
  - Vulvovaginal mycotic infection [Recovered/Resolved]

NARRATIVE: CASE EVENT DATE: 20140926
